FAERS Safety Report 26201124 (Version 3)
Quarter: 2025Q4

REPORT INFORMATION
  Report Type: Report from Study
  Country: AU (occurrence: AU)
  Receive Date: 20251226
  Receipt Date: 20251231
  Transmission Date: 20260118
  Serious: Yes (Hospitalization, Other)
  Sender: JOHNSON AND JOHNSON
  Company Number: AU-JNJFOC-20251224850

PATIENT

DRUGS (1)
  1. STELARA [Suspect]
     Active Substance: USTEKINUMAB
     Indication: Crohn^s disease
     Route: 058

REACTIONS (62)
  - Appendicitis [Unknown]
  - Clostridium difficile colitis [Unknown]
  - Helicobacter infection [Unknown]
  - Pharyngotonsillitis [Unknown]
  - Pneumonia [Unknown]
  - Herpes zoster [Unknown]
  - Infectious mononucleosis [Unknown]
  - COVID-19 [Unknown]
  - Proteus infection [Unknown]
  - Uterine infection [Unknown]
  - Malignant melanoma [Unknown]
  - Squamous cell carcinoma [Unknown]
  - Abdominal pain [Unknown]
  - Subcutaneous abscess [Unknown]
  - Anaemia [Unknown]
  - Arthralgia [Unknown]
  - Atelectasis [Unknown]
  - Atrial fibrillation [Unknown]
  - Coronary artery disease [Unknown]
  - Carotid artery aneurysm [Unknown]
  - Cerebrovascular accident [Unknown]
  - Bile duct stone [Unknown]
  - Cytopenia [Unknown]
  - Endometriosis [Unknown]
  - Oesophageal obstruction [Unknown]
  - Gastric ulcer [Unknown]
  - Gastrointestinal haemorrhage [Unknown]
  - Hernia [Unknown]
  - Hypotension [Unknown]
  - Mental impairment [Unknown]
  - Abortion spontaneous [Recovered/Resolved]
  - Obesity [Unknown]
  - Gastrointestinal infection [Unknown]
  - Fatigue [Unknown]
  - Candida infection [Unknown]
  - Oral infection [Unknown]
  - Tooth infection [Unknown]
  - Bronchitis [Unknown]
  - Sinusitis [Unknown]
  - Respiratory tract infection [Unknown]
  - Urinary tract infection [Unknown]
  - Alopecia [Unknown]
  - Constipation [Unknown]
  - Costochondritis [Unknown]
  - Dental caries [Unknown]
  - Liver function test abnormal [Unknown]
  - Joint dislocation [Unknown]
  - Eye disorder [Unknown]
  - Fracture [Unknown]
  - Headache [Unknown]
  - Hot flush [Unknown]
  - Morton^s neuralgia [Unknown]
  - Mouth ulceration [Unknown]
  - Night sweats [Unknown]
  - Hyperkeratosis [Unknown]
  - Tinnitus [Unknown]
  - Infusion related reaction [Unknown]
  - Vertigo [Unknown]
  - Drug ineffective [Unknown]
  - Skin disorder [Unknown]
  - Palpitations [Unknown]
  - Exposure during pregnancy [Recovered/Resolved]
